FAERS Safety Report 9557480 (Version 1)
Quarter: 2013Q3

REPORT INFORMATION
  Report Type: Spontaneous
  Country: US (occurrence: None)
  Receive Date: 20130726
  Receipt Date: 20130726
  Transmission Date: 20140515
  Serious: Yes (Hospitalization)
  Sender: FDA-Public Use
  Company Number: UTC-022284

PATIENT
  Age: 57 Year
  Sex: Female

DRUGS (4)
  1. REMODULIN [Suspect]
     Indication: PULMONARY HYPERTENSION
     Dosage: 0.019 UG/KG 1 IN 1 MIN
     Dates: start: 20111222
  2. COUMADIN (WARFARIN SODIUM) [Concomitant]
  3. REVATION (SILDENAFIL CITRATE) [Concomitant]
  4. LETAIRIS (AMBRISENTAN) (TABLETS) [Concomitant]

REACTIONS (1)
  - Oedema peripheral [None]
